FAERS Safety Report 4712731-4 (Version None)
Quarter: 2005Q3

REPORT INFORMATION
  Report Type: 
  Country: None (occurrence: None)
  Receive Date: 20050701
  Receipt Date: 20050405
  Transmission Date: 20060218
  Serious: Yes (Hospitalization, Other)
  Sender: FDA-Public Use
  Company Number: 2005054399

PATIENT
  Age: 10 Year
  Sex: Male
  Weight: 46.2669 kg

DRUGS (2)
  1. ZOLOFT [Suspect]
     Indication: DEPRESSION
     Dosage: 50 MG (50 MG, 1 IN 1 D), ORAL
     Route: 048
     Dates: start: 20050201, end: 20050304
  2. TRAZODONE (TRAZODONE) [Concomitant]

REACTIONS (1)
  - SUICIDAL IDEATION [None]
